FAERS Safety Report 6418491-3 (Version None)
Quarter: 2009Q4

REPORT INFORMATION
  Report Type: 
  Country: None (occurrence: None)
  Receive Date: 20091021
  Receipt Date: 20090715
  Transmission Date: 20100525
  Serious: No
  Sender: FDA-Public Use
  Company Number: ALL1-2009-01942

PATIENT
  Age: 54 Year
  Sex: Female
  Weight: 88.4 kg

DRUGS (4)
  1. VYVANSE [Suspect]
     Indication: ATTENTION DEFICIT/HYPERACTIVITY DISORDER
     Dosage: 50 MG, 1X/DAY:QD, ORAL
     Route: 048
     Dates: start: 20090703
  2. CYMBALTA [Suspect]
     Indication: AGITATION
     Dosage: 1X/DAY:QD, ORAL
     Route: 048
     Dates: end: 20090702
  3. CYMBALTA [Suspect]
     Indication: NERVOUSNESS
     Dosage: 1X/DAY:QD, ORAL
     Route: 048
     Dates: end: 20090702
  4. PROZAC [Concomitant]

REACTIONS (2)
  - INSOMNIA [None]
  - NERVOUSNESS [None]
